FAERS Safety Report 6638817-5 (Version None)
Quarter: 2010Q1

REPORT INFORMATION
  Report Type: 
  Country: None (occurrence: None)
  Receive Date: 20100317
  Receipt Date: 20100303
  Transmission Date: 20100710
  Serious: Yes (Life-Threatening, Hospitalization)
  Sender: FDA-Public Use
  Company Number: FR-MYLANLABS-2010S1003539

PATIENT
  Age: 73 Year
  Sex: Female
  Weight: 58 kg

DRUGS (22)
  1. BROMAZEPAM [Interacting]
     Indication: INTENTIONAL OVERDOSE
     Dosage: TOTAL MAXIMUM INTAKE OF 180MG
     Route: 048
  2. ZOLPIDEM [Suspect]
     Indication: INTENTIONAL OVERDOSE
     Dosage: TOTAL MAXIMUM INTAKE OF 140MG
     Route: 048
  3. ZOLPIDEM [Suspect]
  4. ESOMEPRAZOLE [Interacting]
     Route: 051
  5. AMIODARONE HCL [Interacting]
  6. AMIODARONE HCL [Interacting]
  7. FLUINDIONE [Concomitant]
  8. DIPYRIDAMOLE [Concomitant]
  9. AMLODIPINE [Concomitant]
  10. RAMIPRIL [Concomitant]
  11. GLICLAZIDE [Concomitant]
  12. ATORVASTATIN CALCIUM [Concomitant]
  13. BETAHISTINE [Concomitant]
  14. FLUMAZENIL [Concomitant]
     Dosage: BY A 0.3 MG/H INFUSION
     Route: 041
  15. ETOMIDATE [Concomitant]
  16. SUCCINYLCHOLINE CHLORIDE [Concomitant]
  17. FENTANYL [Concomitant]
  18. HEPARIN [Concomitant]
     Dosage: UNFRACTIONATED HEPARIN
  19. INSULIN [Concomitant]
  20. CEFOTAXIME [Concomitant]
     Dosage: FOR 8 DAYS
  21. METRONIDAZOLE [Concomitant]
     Dosage: FOR 8 DAYS
  22. FLUMAZENIL [Concomitant]
     Indication: DIAGNOSTIC PROCEDURE
     Dosage: DIAGNOSTIC INJECTION

REACTIONS (3)
  - COMA [None]
  - DRUG INTERACTION [None]
  - INTENTIONAL OVERDOSE [None]
